FAERS Safety Report 15542246 (Version 1)
Quarter: 2018Q4

REPORT INFORMATION
  Report Type: Report from Study
  Country: None (occurrence: US)
  Receive Date: 20181023
  Receipt Date: 20181023
  Transmission Date: 20190205
  Serious: Yes (Death)
  Sender: FDA-Public Use
  Company Number: US-ABBVIE-18S-163-2526580-00

PATIENT
  Age: 74 Year
  Sex: Female
  Weight: 45.4 kg

DRUGS (1)
  1. CREON [Suspect]
     Active Substance: PANCRELIPASE AMYLASE\PANCRELIPASE LIPASE\PANCRELIPASE PROTEASE
     Indication: PRODUCT USED FOR UNKNOWN INDICATION
     Route: 048
     Dates: start: 201807, end: 20181014

REACTIONS (3)
  - Dysarthria [Fatal]
  - Pancreatic carcinoma [Fatal]
  - Hemiplegia [Fatal]

NARRATIVE: CASE EVENT DATE: 20181011
